FAERS Safety Report 16933597 (Version 1)
Quarter: 2019Q4

REPORT INFORMATION
  Report Type: Spontaneous
  Country: IT (occurrence: IT)
  Receive Date: 20191018
  Receipt Date: 20191018
  Transmission Date: 20200122
  Serious: Yes (Other)
  Sender: FDA-Public Use
  Company Number: IT-HIKMA PHARMACEUTICALS USA INC.-IT-H14001-19-49371

PATIENT
  Age: 45 Year
  Sex: Male

DRUGS (2)
  1. ACICLOVIR HIKMA [Suspect]
     Active Substance: ACYCLOVIR SODIUM
     Indication: MENINGITIS
     Route: 042
  2. TRIPLIAM [Concomitant]
     Active Substance: AMLODIPINE\INDAPAMIDE\PERINDOPRIL
     Indication: PRODUCT USED FOR UNKNOWN INDICATION
     Dosage: ()
     Route: 065

REACTIONS (1)
  - Dyspnoea [Recovered/Resolved]

NARRATIVE: CASE EVENT DATE: 20190903
